FAERS Safety Report 6206785-6 (Version None)
Quarter: 2009Q2

REPORT INFORMATION
  Report Type: 
  Country: None (occurrence: None)
  Receive Date: 20090528
  Receipt Date: 20090520
  Transmission Date: 20091009
  Serious: Yes (Other)
  Sender: FDA-Public Use
  Company Number: JP-AVENTIS-200910939JP

PATIENT
  Age: 77 Year
  Sex: Male
  Weight: 62.7 kg

DRUGS (3)
  1. CLEXANE [Suspect]
     Route: 058
     Dates: start: 20090325, end: 20090331
  2. TOWARAT [Concomitant]
     Indication: HYPERTENSION
     Route: 048
  3. MAIBASTAN [Concomitant]
     Route: 048

REACTIONS (2)
  - LIVER DISORDER [None]
  - LIVER INJURY [None]
